FAERS Safety Report 25601456 (Version 1)
Quarter: 2025Q3

REPORT INFORMATION
  Report Type: Spontaneous
  Country: US (occurrence: None)
  Receive Date: 20250723
  Receipt Date: 20250723
  Transmission Date: 20251020
  Serious: Yes (Life-Threatening, Hospitalization, Other)
  Sender: FDA-CTU
  Company Number: None

PATIENT
  Age: 43 Year
  Sex: Female
  Weight: 67.5 kg

DRUGS (2)
  1. BIMEKIZUMAB-BKZX [Suspect]
     Active Substance: BIMEKIZUMAB-BKZX
     Indication: Psoriasis
     Dates: start: 20250215, end: 20250708
  2. BIMEKIZUMAB-BKZX [Suspect]
     Active Substance: BIMEKIZUMAB-BKZX
     Indication: Psoriatic arthropathy

REACTIONS (6)
  - Ovarian cyst [None]
  - Sepsis [None]
  - Ovarian abscess [None]
  - Artificial menopause [None]
  - Oral candidiasis [None]
  - Gingivitis [None]

NARRATIVE: CASE EVENT DATE: 20250401
